FAERS Safety Report 8814379 (Version 1)
Quarter: 2012Q4

REPORT INFORMATION
  Report Type: Spontaneous
  Country: US (occurrence: None)
  Receive Date: 20120925
  Receipt Date: 20120925
  Transmission Date: 20130627
  Serious: Yes (Hospitalization)
  Sender: FDA-Public Use
  Company Number: FK201202698

PATIENT
  Age: 61 Year
  Sex: Female

DRUGS (3)
  1. CARBOPLATIN [Suspect]
     Indication: OVARIAN CANCER
     Route: 042
     Dates: start: 20100409
  2. FARLETUZUMAB [Suspect]
     Dosage: blinded dose, intravenous (not otherwise specified)
     Dates: start: 20100409
  3. PACLITAXEL [Suspect]
     Route: 042
     Dates: start: 20100409

REACTIONS (2)
  - Febrile neutropenia [None]
  - Pneumonia [None]
